FAERS Safety Report 5075574-0 (Version None)
Quarter: 2006Q3

REPORT INFORMATION
  Report Type: 
  Country: None (occurrence: None)
  Receive Date: 20060809
  Receipt Date: 20041115
  Transmission Date: 20061208
  Serious: Yes (Disabling)
  Sender: FDA-Public Use
  Company Number: US-ROCHE-386394

PATIENT
  Age: 20 Year
  Sex: Male
  Weight: 88.5 kg

DRUGS (6)
  1. ACCUTANE [Suspect]
     Indication: ACNE
     Route: 048
     Dates: start: 20030210, end: 20030325
  2. ACCUTANE [Suspect]
     Route: 048
     Dates: start: 20030325, end: 20030422
  3. ACCUTANE [Suspect]
     Route: 048
     Dates: start: 20030422, end: 20030610
  4. ACCUTANE [Suspect]
     Route: 048
     Dates: end: 20040315
  5. ANTIBIOTIC [Concomitant]
     Indication: DRUG USE FOR UNKNOWN INDICATION
  6. CEPHALEXIN [Concomitant]
     Indication: ACNE
     Route: 048
     Dates: start: 20030210

REACTIONS (23)
  - BACK PAIN [None]
  - BLINDNESS [None]
  - BLOOD CHOLESTEROL INCREASED [None]
  - CARPAL TUNNEL SYNDROME [None]
  - DEPRESSION [None]
  - DIVERTICULITIS [None]
  - GASTROINTESTINAL DISORDER [None]
  - HAEMORRHAGE [None]
  - HAEMORRHOIDS [None]
  - INFLAMMATORY BOWEL DISEASE [None]
  - INTESTINAL HAEMORRHAGE [None]
  - JOINT SPRAIN [None]
  - LABORATORY TEST ABNORMAL [None]
  - LOW DENSITY LIPOPROTEIN INCREASED [None]
  - NEPHROLITHIASIS [None]
  - NERVE COMPRESSION [None]
  - NIGHT BLINDNESS [None]
  - RASH [None]
  - RECTAL HAEMORRHAGE [None]
  - SKIN LACERATION [None]
  - SUPERFICIAL INJURY OF EYE [None]
  - VISION BLURRED [None]
  - VISUAL DISTURBANCE [None]
